FAERS Safety Report 23987358 (Version 1)
Quarter: 2024Q2

REPORT INFORMATION
  Report Type: Spontaneous
  Country: US (occurrence: US)
  Receive Date: 20240618
  Receipt Date: 20240618
  Transmission Date: 20240716
  Serious: No
  Sender: FDA-Public Use
  Company Number: US-SANDOZ-SDZ2024US058584

PATIENT
  Age: 35 Year
  Sex: Male

DRUGS (1)
  1. HYRIMOZ [Suspect]
     Active Substance: ADALIMUMAB-ADAZ
     Indication: Crohn^s disease
     Route: 003
     Dates: start: 20240616

REACTIONS (1)
  - Injection site paraesthesia [Recovered/Resolved]

NARRATIVE: CASE EVENT DATE: 20240616
